FAERS Safety Report 9859489 (Version 2)
Quarter: 2014Q1

REPORT INFORMATION
  Report Type: Spontaneous
  Country: US (occurrence: US)
  Receive Date: 20140131
  Receipt Date: 20140131
  Transmission Date: 20141002
  Serious: Yes (Hospitalization)
  Sender: FDA-Public Use
  Company Number: US-B.I. PHARMACEUTICALS,INC./RIDGEFIELD-2013-BI-30457BP

PATIENT
  Sex: Male
  Weight: 120.2 kg

DRUGS (12)
  1. PRADAXA [Suspect]
     Indication: ATRIAL FIBRILLATION
     Dosage: 300 MG
     Dates: start: 20120202, end: 20120426
  2. TAMSULOSIN [Concomitant]
  3. SENOKOT [Concomitant]
     Dosage: 8.6 MG
  4. RISPERDAL [Concomitant]
     Dosage: 3 MG
     Route: 048
  5. PRAVASTATIN [Concomitant]
     Dosage: 20 MG
  6. SINGULAIR [Concomitant]
     Dosage: 10 MG
  7. LOPRESSOR [Concomitant]
     Dosage: 50 MG
  8. MILK OF MAGNESIA [Concomitant]
     Indication: CONSTIPATION
  9. CLARITIN [Concomitant]
  10. VITAMIN B12 [Concomitant]
     Dosage: 1000 MCG
  11. VITAMIN D3 [Concomitant]
     Dosage: 8000 U
  12. BETAMETHASONE [Concomitant]
     Indication: RASH
     Route: 061

REACTIONS (2)
  - Procedural haemorrhage [Unknown]
  - Haemorrhagic anaemia [Unknown]
